FAERS Safety Report 7969725-5 (Version None)
Quarter: 2011Q4

REPORT INFORMATION
  Report Type: 
  Country: None (occurrence: None)
  Receive Date: 20111121
  Receipt Date: 20110815
  Transmission Date: 20120403
  Serious: No
  Sender: FDA-Public Use
  Company Number: 1000022896

PATIENT
  Age: 44 Year
  Sex: Male

DRUGS (7)
  1. VIIBRYD [Suspect]
     Indication: ANXIETY
     Dosage: 10 MG (10 MG, 1 IN 1 D), ORAL
     Route: 048
     Dates: start: 20110701, end: 20110101
  2. VIIBRYD [Suspect]
     Indication: DEPRESSION
     Dosage: 40MG (40 MG, 1 IN 1 D), ORAL ; 20 MG (20 MG, 1 IN 1 D) , 10 MG (10 MG, 1 IN 1 D) , ORAL
     Route: 048
     Dates: start: 20110804, end: 20110804
  3. VIIBRYD [Suspect]
     Indication: ANXIETY
     Dosage: 40MG (40 MG, 1 IN 1 D), ORAL ; 20 MG (20 MG, 1 IN 1 D) , 10 MG (10 MG, 1 IN 1 D) , ORAL
     Route: 048
     Dates: start: 20110804, end: 20110804
  4. VIIBRYD [Suspect]
     Indication: DEPRESSION
     Dosage: 40MG (40 MG, 1 IN 1 D), ORAL ; 20 MG (20 MG, 1 IN 1 D) , 10 MG (10 MG, 1 IN 1 D) , ORAL
     Route: 048
     Dates: start: 20110805, end: 20110805
  5. VIIBRYD [Suspect]
     Indication: ANXIETY
     Dosage: 40MG (40 MG, 1 IN 1 D), ORAL ; 20 MG (20 MG, 1 IN 1 D) , 10 MG (10 MG, 1 IN 1 D) , ORAL
     Route: 048
     Dates: start: 20110805, end: 20110805
  6. VIIBRYD [Suspect]
     Indication: DEPRESSION
     Dosage: 40MG (40 MG, 1 IN 1 D), ORAL ; 20 MG (20 MG, 1 IN 1 D) , 10 MG (10 MG, 1 IN 1 D) , ORAL
     Route: 048
     Dates: start: 20110101, end: 20110803
  7. VIIBRYD [Suspect]
     Indication: ANXIETY
     Dosage: 40MG (40 MG, 1 IN 1 D), ORAL ; 20 MG (20 MG, 1 IN 1 D) , 10 MG (10 MG, 1 IN 1 D) , ORAL
     Route: 048
     Dates: start: 20110101, end: 20110803

REACTIONS (8)
  - DIARRHOEA [None]
  - ARTHRALGIA [None]
  - JOINT STIFFNESS [None]
  - LYMPHADENOPATHY [None]
  - HEADACHE [None]
  - NIGHT SWEATS [None]
  - MUSCLE TWITCHING [None]
  - NERVOUS SYSTEM DISORDER [None]
